FAERS Safety Report 6679901-X (Version None)
Quarter: 2010Q2

REPORT INFORMATION
  Report Type: 
  Country: None (occurrence: None)
  Receive Date: 20100413
  Receipt Date: 20100322
  Transmission Date: 20101027
  Serious: Yes (Death, Life-Threatening, Hospitalization, Other)
  Sender: FDA-Public Use
  Company Number: US-BAXTER-2008BH011000

PATIENT
  Age: 76 Year
  Sex: Female

DRUGS (20)
  1. HEPARIN SODIUM INJECTION [Suspect]
     Indication: HAEMODIALYSIS
     Route: 042
     Dates: start: 20070924, end: 20080212
  2. HEPARIN SODIUM INJECTION [Suspect]
     Route: 042
     Dates: start: 20071215, end: 20071215
  3. HEPARIN SODIUM INJECTION [Suspect]
     Route: 042
     Dates: start: 20070924, end: 20080212
  4. HEPARIN SODIUM INJECTION [Suspect]
     Route: 042
     Dates: start: 20070924, end: 20080212
  5. HEPARIN SODIUM INJECTION [Suspect]
     Route: 042
     Dates: start: 20070924, end: 20080212
  6. FENTANYL [Concomitant]
     Indication: DRUG USE FOR UNKNOWN INDICATION
     Route: 062
  7. SYNTHROID [Concomitant]
     Indication: DRUG USE FOR UNKNOWN INDICATION
     Route: 048
  8. PRILOSEC [Concomitant]
     Indication: DRUG USE FOR UNKNOWN INDICATION
     Route: 048
  9. NEPHRO-VITE RX [Concomitant]
     Indication: DRUG USE FOR UNKNOWN INDICATION
     Route: 048
  10. COREG [Concomitant]
     Indication: DRUG USE FOR UNKNOWN INDICATION
     Route: 048
  11. TRAMADOL HCL [Concomitant]
     Indication: DRUG USE FOR UNKNOWN INDICATION
     Route: 048
  12. TIMOLOL [Concomitant]
     Indication: DRUG USE FOR UNKNOWN INDICATION
     Route: 047
  13. TRAVATAN [Concomitant]
     Indication: DRUG USE FOR UNKNOWN INDICATION
     Route: 047
  14. FENTANYL [Concomitant]
     Route: 062
  15. ARANESP [Concomitant]
     Indication: DRUG USE FOR UNKNOWN INDICATION
     Route: 042
  16. MARINOL [Concomitant]
     Indication: DRUG USE FOR UNKNOWN INDICATION
     Route: 065
  17. COREG [Concomitant]
     Route: 048
  18. AMBIEN [Concomitant]
     Indication: DRUG USE FOR UNKNOWN INDICATION
     Route: 048
  19. IRON [Concomitant]
     Indication: HAEMODIALYSIS
     Route: 065
  20. ERYTHROPOIESIS STIMULATING AGENTS [Concomitant]
     Indication: HAEMODIALYSIS
     Route: 065

REACTIONS (13)
  - ARTERIOSCLEROSIS [None]
  - ASTHENIA [None]
  - BLOOD PRESSURE FLUCTUATION [None]
  - CARDIAC ARREST [None]
  - CARDIAC FAILURE CONGESTIVE [None]
  - CHEST PAIN [None]
  - CONFUSIONAL STATE [None]
  - ELECTROMECHANICAL DISSOCIATION [None]
  - NAUSEA [None]
  - NERVOUSNESS [None]
  - PERICARDITIS [None]
  - PULMONARY OEDEMA [None]
  - SYNCOPE [None]
